FAERS Safety Report 16449811 (Version 1)
Quarter: 2019Q2

REPORT INFORMATION
  Report Type: Report from Study
  Country: US (occurrence: US)
  Receive Date: 20190619
  Receipt Date: 20190619
  Transmission Date: 20190711
  Serious: Yes (Hospitalization, Other)
  Sender: FDA-Public Use
  Company Number: US-BRISTOL-MYERS SQUIBB COMPANY-BMS-2019-057965

PATIENT
  Age: 77 Year
  Sex: Female
  Weight: 72.2 kg

DRUGS (5)
  1. NIVOLUMAB [Suspect]
     Active Substance: NIVOLUMAB
     Indication: MALIGNANT MELANOMA
     Dosage: 240 MILLIGRAM
     Route: 042
     Dates: start: 20190212, end: 20190604
  2. PREDNISOLONE. [Concomitant]
     Active Substance: PREDNISOLONE
     Indication: UVEAL MELANOMA
     Dosage: 1 DOSAGE FORM, QID
     Route: 065
     Dates: start: 20190111
  3. TOBRAMYCIN. [Concomitant]
     Active Substance: TOBRAMYCIN
     Indication: UVEAL MELANOMA
     Dosage: 1 DOSAGE FORM, QID
     Route: 065
     Dates: start: 20190111
  4. SIMVASTATIN. [Concomitant]
     Active Substance: SIMVASTATIN
     Indication: HYPERLIPIDAEMIA
     Dosage: 40 MILLIGRAM, QHS
     Route: 065
     Dates: start: 20180924
  5. IPILIMUMAB [Suspect]
     Active Substance: IPILIMUMAB
     Indication: MALIGNANT MELANOMA
     Dosage: 74 MILLIGRAM
     Route: 042
     Dates: start: 20190212, end: 20190507

REACTIONS (3)
  - Hydroureter [Unknown]
  - Hydronephrosis [Unknown]
  - Haematuria [Not Recovered/Not Resolved]

NARRATIVE: CASE EVENT DATE: 20190610
